FAERS Safety Report 19941157 (Version 1)
Quarter: 2021Q4

REPORT INFORMATION
  Report Type: Spontaneous
  Country: CN (occurrence: CN)
  Receive Date: 20211012
  Receipt Date: 20211012
  Transmission Date: 20220303
  Serious: Yes (Other)
  Sender: FDA-Public Use
  Company Number: CN-SUN PHARMACEUTICAL INDUSTRIES LTD-2021R1-313135

PATIENT
  Age: 51 Year
  Sex: Male

DRUGS (7)
  1. OXALIPLATIN [Suspect]
     Active Substance: OXALIPLATIN
     Indication: Metastases to liver
     Dosage: 85 MILLIGRAM/SQ. METER, DAY 1
     Route: 042
     Dates: start: 20191030, end: 20191231
  2. CETUXIMAB [Suspect]
     Active Substance: CETUXIMAB
     Indication: Metastases to liver
     Dosage: 500 MILLIGRAM/SQ. METER OVER 2 HOURS, DAY 1, EVERY 2 WEEKS
     Route: 042
     Dates: start: 20200103
  3. CETUXIMAB [Suspect]
     Active Substance: CETUXIMAB
     Dosage: 500 MILLIGRAM/SQ. METER OVER 2 HOURS, DAY 1, EVERY 2 WEEKS
     Route: 042
     Dates: start: 20200117
  4. LEUCOVORIN [Suspect]
     Active Substance: LEUCOVORIN
     Indication: Metastases to liver
     Dosage: 400 MILLIGRAM/SQ. METER, DAY 1
     Route: 042
     Dates: start: 20191030, end: 20191231
  5. FLUOROURACIL [Suspect]
     Active Substance: FLUOROURACIL
     Indication: Metastases to liver
     Dosage: 400 MILLIGRAM/SQ. METER, DAY 1
     Route: 042
     Dates: start: 20191030
  6. FLUOROURACIL [Suspect]
     Active Substance: FLUOROURACIL
     Dosage: 1200 MILLIGRAM/SQ. METER X 2 DAYS EVERY 2 WEEKS
     Route: 042
     Dates: end: 20191231
  7. IRINOTECAN [Concomitant]
     Active Substance: IRINOTECAN
     Indication: Metastases to liver
     Dosage: 165 MILLIGRAM/SQ. METER, DAY 1
     Route: 042

REACTIONS (2)
  - Disease recurrence [Unknown]
  - Rash [Unknown]
